FAERS Safety Report 20565053 (Version 1)
Quarter: 2022Q1

REPORT INFORMATION
  Report Type: Report from Study
  Country: US (occurrence: None)
  Receive Date: 20220308
  Receipt Date: 20220308
  Transmission Date: 20220423
  Serious: No
  Sender: FDA-Public Use
  Company Number: US-Spark Therapeutics, Inc.-US-SPK-21-00019

PATIENT
  Age: 10 Year
  Sex: Female

DRUGS (13)
  1. LUXTURNA [Suspect]
     Active Substance: VORETIGENE NEPARVOVEC-RZYL
     Indication: Leber^s congenital amaurosis
     Dates: start: 20180710, end: 20180710
  2. LUXTURNA [Suspect]
     Active Substance: VORETIGENE NEPARVOVEC-RZYL
     Dates: start: 20180723, end: 20180723
  3. LUXTURNA [Suspect]
     Active Substance: VORETIGENE NEPARVOVEC-RZYL
     Indication: Leber^s congenital amaurosis
     Dates: start: 20180710, end: 20180710
  4. LUXTURNA [Suspect]
     Active Substance: VORETIGENE NEPARVOVEC-RZYL
     Dates: start: 20180723, end: 20180723
  5. DESMOPRESSIN [Concomitant]
     Active Substance: DESMOPRESSIN
     Indication: Enuresis
     Route: 048
     Dates: start: 20191124
  6. PEDIATRIC MULTIVIT-MINERALS-C [Concomitant]
     Indication: Supplementation therapy
     Route: 048
  7. MIRALAX [Concomitant]
     Active Substance: POLYETHYLENE GLYCOL 3350
     Indication: Irritable bowel syndrome
     Dosage: 17 GM/SCOOP POWDER
  8. ACETAMINOPHEN [Concomitant]
     Active Substance: ACETAMINOPHEN
     Indication: Prophylaxis
     Dosage: 160/5 MG/ML
     Route: 048
  9. ONDANSETRON HCL [Concomitant]
     Active Substance: ONDANSETRON HYDROCHLORIDE
     Indication: Irritable bowel syndrome
     Route: 048
  10. CYPROHEPTADINE [Concomitant]
     Active Substance: CYPROHEPTADINE
     Indication: Seasonal allergy
     Route: 048
     Dates: start: 20200309
  11. HYOSCYAMINE [Concomitant]
     Active Substance: HYOSCYAMINE
     Indication: Irritable bowel syndrome
     Route: 048
     Dates: start: 20200309
  12. OMEPRAZOLE [Concomitant]
     Active Substance: OMEPRAZOLE
     Indication: Irritable bowel syndrome
     Route: 048
     Dates: start: 20200210
  13. LUTEIN [Concomitant]
     Active Substance: LUTEIN
     Indication: Supplementation therapy
     Route: 048

REACTIONS (2)
  - Retinal depigmentation [Not Recovered/Not Resolved]
  - Foveal degeneration [Not Recovered/Not Resolved]

NARRATIVE: CASE EVENT DATE: 20210325
